FAERS Safety Report 11778721 (Version 1)
Quarter: 2015Q4

REPORT INFORMATION
  Report Type: Spontaneous
  Country: IN (occurrence: IN)
  Receive Date: 20151125
  Receipt Date: 20151125
  Transmission Date: 20160304
  Serious: Yes (Hospitalization, Other)
  Sender: FDA-Public Use
  Company Number: IN-BAYER-2015-467795

PATIENT
  Age: 25 Year
  Sex: Female
  Weight: 55 kg

DRUGS (3)
  1. CIPROFLOXACIN. [Suspect]
     Active Substance: CIPROFLOXACIN
     Dosage: 2500 MG, UNK
  2. METHYLDOPA. [Suspect]
     Active Substance: METHYLDOPA
     Dosage: 600 MG, UNK
  3. ATENOLOL. [Suspect]
     Active Substance: ATENOLOL
     Dosage: 1000 MG, UNK

REACTIONS (6)
  - Syncope [Recovered/Resolved]
  - Toxicity to various agents [Recovered/Resolved]
  - Overdose [Recovered/Resolved]
  - Product use issue [Recovered/Resolved]
  - Atrioventricular block first degree [Recovered/Resolved]
  - Bradycardia [Recovered/Resolved]
